FAERS Safety Report 4290910-0 (Version None)
Quarter: 2004Q1

REPORT INFORMATION
  Report Type: 
  Country: None (occurrence: None)
  Receive Date: 20040206
  Receipt Date: 20040128
  Transmission Date: 20041129
  Serious: Yes (Hospitalization)
  Sender: FDA-Public Use
  Company Number: 200410284EU

PATIENT
  Age: 74 Year
  Sex: Female

DRUGS (1)
  1. METRONIDAZOLE [Suspect]

REACTIONS (8)
  - BRAIN OEDEMA [None]
  - DYSARTHRIA [None]
  - DYSPHAGIA [None]
  - ENCEPHALOPATHY [None]
  - GAIT DISTURBANCE [None]
  - HYPERTROPHY [None]
  - NERVOUS SYSTEM DISORDER [None]
  - NUCLEAR MAGNETIC RESONANCE IMAGING BRAIN ABNORMAL [None]
